FAERS Safety Report 9539377 (Version 4)
Quarter: 2014Q3

REPORT INFORMATION
  Report Type: Spontaneous
  Country: JP (occurrence: None)
  Receive Date: 20130917
  Receipt Date: 20140821
  Transmission Date: 20150326
  Serious: Yes (Hospitalization, Other)
  Sender: FDA-Public Use
  Company Number: ADR-2013-01614

PATIENT
  Age: 60 Year
  Sex: Male

DRUGS (1)
  1. GABALON INTRATHECAL 0.005% [Suspect]
     Active Substance: BACLOFEN
     Dates: start: 20130813

REACTIONS (5)
  - Somnolence [None]
  - Device battery issue [None]
  - Overdose [None]
  - Wrong technique in drug usage process [None]
  - Device malfunction [None]

NARRATIVE: CASE EVENT DATE: 20130813
